FAERS Safety Report 15401929 (Version 1)
Quarter: 2018Q3

REPORT INFORMATION
  Report Type: Spontaneous
  Country: US (occurrence: US)
  Receive Date: 20180914
  Receipt Date: 20180914
  Transmission Date: 20181010
  Serious: Yes (Other)
  Sender: FDA-Public Use
  Company Number: None

PATIENT
  Age: 77 Year
  Sex: Male
  Weight: 62.1 kg

DRUGS (9)
  1. SUTENT [Concomitant]
     Active Substance: SUNITINIB MALATE
  2. VOTRIENT [Suspect]
     Active Substance: PAZOPANIB HYDROCHLORIDE
     Indication: RENAL CANCER
     Route: 048
     Dates: start: 20161114, end: 20180914
  3. VOTRIENT [Suspect]
     Active Substance: PAZOPANIB HYDROCHLORIDE
     Indication: RENAL CANCER
     Route: 048
     Dates: start: 20161114, end: 20180914
  4. KLONOPIN [Concomitant]
     Active Substance: CLONAZEPAM
  5. UNISOM SLEEPTABS [Concomitant]
     Active Substance: DOXYLAMINE SUCCINATE
  6. LISINOPRIL. [Concomitant]
     Active Substance: LISINOPRIL
  7. MELATONIN [Concomitant]
     Active Substance: MELATONIN
  8. VIAGRA [Concomitant]
     Active Substance: SILDENAFIL CITRATE
  9. XANAX [Concomitant]
     Active Substance: ALPRAZOLAM

REACTIONS (1)
  - Treatment failure [None]

NARRATIVE: CASE EVENT DATE: 20180914
